FAERS Safety Report 9411566 (Version 1)
Quarter: 2013Q3

REPORT INFORMATION
  Report Type: Spontaneous
  Country: US (occurrence: None)
  Receive Date: 20130718
  Receipt Date: 20130718
  Transmission Date: 20140515
  Serious: Yes (Life-Threatening, Disabling)
  Sender: FDA-Public Use
  Company Number: None

PATIENT
  Age: 54 Year
  Sex: Female
  Weight: 41.28 kg

DRUGS (2)
  1. ZYPREXA [Suspect]
     Indication: BIPOLAR DISORDER
     Dates: start: 2006, end: 2013
  2. SEROQUEL [Suspect]

REACTIONS (5)
  - Tardive dyskinesia [None]
  - Dystonia [None]
  - Dyskinesia [None]
  - Mastication disorder [None]
  - Dysphagia [None]
